FAERS Safety Report 20695432 (Version 1)
Quarter: 2022Q2

REPORT INFORMATION
  Report Type: Spontaneous
  Country: US (occurrence: None)
  Receive Date: 20220408
  Receipt Date: 20220408
  Transmission Date: 20220721
  Serious: No
  Sender: FDA-Public Use
  Company Number: None

PATIENT
  Age: 78 Year
  Sex: Male
  Weight: 90 kg

DRUGS (3)
  1. LATANOPROST [Suspect]
     Active Substance: LATANOPROST
     Indication: Intraocular pressure increased
     Dosage: OTHER QUANTITY : 1 DROP(S);?FREQUENCY : DAILY;?
     Route: 047
     Dates: start: 20220329, end: 20220329
  2. XELPROS [Concomitant]
     Active Substance: LATANOPROST
  3. lubricating eye drops (saline-based) [Concomitant]

REACTIONS (4)
  - Product substitution issue [None]
  - Eye pain [None]
  - Eye pain [None]
  - Pain [None]

NARRATIVE: CASE EVENT DATE: 20220329
